FAERS Safety Report 21268582 (Version 2)
Quarter: 2022Q4

REPORT INFORMATION
  Report Type: Spontaneous
  Country: CA (occurrence: CA)
  Receive Date: 20220830
  Receipt Date: 20221020
  Transmission Date: 20230113
  Serious: Yes (Hospitalization, Other)
  Sender: FDA-Public Use
  Company Number: CA-ALKEM LABORATORIES LIMITED-CA-ALKEM-2022-09040

PATIENT
  Age: 20 Month
  Sex: Male

DRUGS (2)
  1. MORPHINE SULFATE [Suspect]
     Active Substance: MORPHINE SULFATE
     Indication: Urethral repair
     Dosage: 3 MILLIGRAMS (PRIOR TO DISCHARGE)
     Route: 048
  2. MORPHINE SULFATE [Suspect]
     Active Substance: MORPHINE SULFATE
     Dosage: 0.3 MILLILITER (CONCENTRATION OF 10 MG/ML 2 TO 3 H LATER AT HOME BY A PARENT)
     Route: 048

REACTIONS (2)
  - Toxic leukoencephalopathy [Unknown]
  - Overdose [Unknown]
